FAERS Safety Report 5344535-6 (Version None)
Quarter: 2007Q2

REPORT INFORMATION
  Report Type: 
  Country: None (occurrence: None)
  Receive Date: 20070604
  Receipt Date: 20070523
  Transmission Date: 20071010
  Serious: Yes (Other)
  Sender: FDA-Public Use
  Company Number: US-PFIZER INC-2007042747

PATIENT
  Sex: Female
  Weight: 77.1 kg

DRUGS (8)
  1. CHANTIX [Suspect]
     Indication: EX-SMOKER
  2. CELEBREX [Interacting]
     Indication: ARTHRITIS
     Dates: start: 20070504, end: 20070501
  3. ALL OTHER THERAPEUTIC PRODUCTS [Interacting]
  4. VALSARTAN [Concomitant]
     Indication: HYPERTENSION
  5. VALSARTAN [Concomitant]
     Indication: PROTEIN URINE
  6. ESTROGENS [Concomitant]
     Indication: MENOPAUSE
  7. PROGESTERONE [Concomitant]
     Indication: MENOPAUSE
  8. LEXAPRO [Concomitant]
     Indication: DEPRESSION

REACTIONS (7)
  - ABNORMAL DREAMS [None]
  - CHANGE OF BOWEL HABIT [None]
  - DRUG INTERACTION [None]
  - FLATULENCE [None]
  - IMPAIRED DRIVING ABILITY [None]
  - SLEEP DISORDER [None]
  - SUDDEN ONSET OF SLEEP [None]
